FAERS Safety Report 24280952 (Version 2)
Quarter: 2024Q4

REPORT INFORMATION
  Report Type: Spontaneous
  Country: CN (occurrence: CN)
  Receive Date: 20240904
  Receipt Date: 20241008
  Transmission Date: 20250114
  Serious: Yes (Other)
  Sender: ALEXION PHARMACEUTICALS
  Company Number: 2024A195998

PATIENT
  Age: 67 Year

DRUGS (3)
  1. GEFITINIB [Suspect]
     Active Substance: GEFITINIB
     Indication: Lung adenocarcinoma stage III
     Dosage: 250 MILLIGRAM, QD
  2. RADIATION THERAPY [Concomitant]
     Active Substance: RADIATION THERAPY
     Indication: Lung adenocarcinoma stage III
  3. RADIATION THERAPY [Concomitant]
     Active Substance: RADIATION THERAPY

REACTIONS (4)
  - Drug resistance [Unknown]
  - Malignant neoplasm progression [Unknown]
  - Human epidermal growth factor receptor positive [Unknown]
  - Acquired gene mutation [Unknown]
